FAERS Safety Report 4741338-8 (Version None)
Quarter: 2005Q3

REPORT INFORMATION
  Report Type: 
  Country: None (occurrence: None)
  Receive Date: 20050808
  Receipt Date: 20050726
  Transmission Date: 20060218
  Serious: Yes (Hospitalization, Other)
  Sender: FDA-Public Use
  Company Number: USA0507103893

PATIENT
  Age: 50 Year
  Sex: Female

DRUGS (1)
  1. FORTEO [Suspect]
     Dates: start: 20040701

REACTIONS (3)
  - FALL [None]
  - FEMUR FRACTURE [None]
  - FOOT FRACTURE [None]
